FAERS Safety Report 25499351 (Version 3)
Quarter: 2025Q4

REPORT INFORMATION
  Report Type: Spontaneous
  Country: IN (occurrence: IN)
  Receive Date: 20250701
  Receipt Date: 20251118
  Transmission Date: 20260118
  Serious: Yes (Hospitalization, Other)
  Sender: PFIZER
  Company Number: IN-PFIZER INC-PV202500076515

PATIENT
  Age: 57 Year
  Sex: Female
  Weight: 33.8 kg

DRUGS (2)
  1. CRIZOTINIB [Suspect]
     Active Substance: CRIZOTINIB
     Indication: Lung adenocarcinoma
     Dosage: 250 MG, 2X/DAY (BD; 8AM AND 8PM)
     Route: 048
     Dates: start: 20250610
  2. TAGRISSO [Concomitant]
     Active Substance: OSIMERTINIB
     Dosage: 80 MG, 1X/DAY
     Route: 048
     Dates: start: 20250610

REACTIONS (5)
  - Urinary tract infection [Unknown]
  - Lung adenocarcinoma [Unknown]
  - Malignant neoplasm progression [Unknown]
  - Blood pressure systolic increased [Unknown]
  - Off label use [Unknown]

NARRATIVE: CASE EVENT DATE: 20250701
